APPROVED DRUG PRODUCT: FENOPROFEN CALCIUM
Active Ingredient: FENOPROFEN CALCIUM
Strength: EQ 300MG BASE
Dosage Form/Route: CAPSULE;ORAL
Application: A071738 | Product #001
Applicant: QUANTUM PHARMICS LTD
Approved: Aug 17, 1988 | RLD: No | RS: No | Type: DISCN